FAERS Safety Report 4274603-1 (Version None)
Quarter: 2004Q1

REPORT INFORMATION
  Report Type: 
  Country: None (occurrence: None)
  Receive Date: 20040115
  Receipt Date: 20031216
  Transmission Date: 20041129
  Serious: No
  Sender: FDA-Public Use
  Company Number: EWC040137515

PATIENT
  Age: 23 Year
  Sex: Female
  Weight: 57 kg

DRUGS (2)
  1. ZYPREXA [Suspect]
     Indication: MANIA
     Dosage: 10 MG/DAY
     Dates: start: 20031215
  2. LITAREX (LITHIUM CITRATE) [Concomitant]

REACTIONS (4)
  - DIZZINESS [None]
  - FEELING ABNORMAL [None]
  - HAEMATOMA [None]
  - SYNCOPE [None]
